FAERS Safety Report 9119790 (Version 3)
Quarter: 2013Q3

REPORT INFORMATION
  Report Type: Report from Study
  Country: CO (occurrence: CO)
  Receive Date: 20130226
  Receipt Date: 20130812
  Transmission Date: 20140515
  Serious: Yes (Death, Congenital Anomaly)
  Sender: FDA-Public Use
  Company Number: CO-ELI_LILLY_AND_COMPANY-CO201302006207

PATIENT
  Sex: 0

DRUGS (4)
  1. LISPRO REGLISPRO [Suspect]
     Indication: GESTATIONAL DIABETES
     Dosage: UNK
     Route: 064
  2. LISPRO REGLISPRO [Suspect]
     Indication: GESTATIONAL DIABETES
     Dosage: UNK
     Route: 064
  3. HUMULIN NPH [Suspect]
     Indication: GESTATIONAL DIABETES
     Dosage: UNK
     Route: 064
  4. HUMULIN NPH [Suspect]
     Indication: GESTATIONAL DIABETES
     Dosage: UNK
     Route: 064

REACTIONS (3)
  - Death neonatal [Fatal]
  - Transposition of the great vessels [Not Recovered/Not Resolved]
  - Foetal exposure during pregnancy [Not Recovered/Not Resolved]
